FAERS Safety Report 4975073-8 (Version None)
Quarter: 2006Q2

REPORT INFORMATION
  Report Type: 
  Country: None (occurrence: None)
  Receive Date: 20060418
  Receipt Date: 20051208
  Transmission Date: 20061013
  Serious: Yes (Other)
  Sender: FDA-Public Use
  Company Number: FR-AVENTIS-200514097FR

PATIENT
  Age: 71 Year
  Sex: Female
  Weight: 59 kg

DRUGS (4)
  1. ARAVA [Suspect]
     Indication: RHEUMATOID ARTHRITIS
     Route: 048
     Dates: start: 20000901
  2. ISOBAR [Suspect]
     Indication: HYPERTENSION
     Route: 048
     Dates: start: 19910101, end: 20060101
  3. DETENSIEL [Suspect]
     Indication: HYPERTENSION
     Route: 048
     Dates: start: 19940101, end: 20060101
  4. NEBILOX [Concomitant]
     Indication: HYPERTENSION
     Route: 048
     Dates: start: 20060101

REACTIONS (3)
  - BLOOD CREATININE INCREASED [None]
  - BLOOD UREA INCREASED [None]
  - RENAL FAILURE [None]
